FAERS Safety Report 5773427-3 (Version None)
Quarter: 2008Q2

REPORT INFORMATION
  Report Type: 
  Country: None (occurrence: None)
  Receive Date: 20080601
  Receipt Date: 20080311
  Transmission Date: 20081010
  Serious: No
  Sender: FDA-Public Use
  Company Number: US200803003221

PATIENT
  Age: 59 Year
  Sex: Female
  Weight: 97.5 kg

DRUGS (7)
  1. BYETTA [Suspect]
     Indication: TYPE 2 DIABETES MELLITUS
     Dosage: 5 UG, 2/D, SUBCUTANEOUS; 10 UG, 2/D, SUBCUTANEOUS; 5 UG, 2/D, SUBCUTANEOUS
     Route: 058
     Dates: end: 20071101
  2. BYETTA [Suspect]
     Indication: TYPE 2 DIABETES MELLITUS
     Dosage: 5 UG, 2/D, SUBCUTANEOUS; 10 UG, 2/D, SUBCUTANEOUS; 5 UG, 2/D, SUBCUTANEOUS
     Route: 058
     Dates: start: 20060101
  3. BYETTA [Suspect]
     Indication: TYPE 2 DIABETES MELLITUS
     Dosage: 5 UG, 2/D, SUBCUTANEOUS; 10 UG, 2/D, SUBCUTANEOUS; 5 UG, 2/D, SUBCUTANEOUS
     Route: 058
     Dates: start: 20071101
  4. METFORMIN HCL [Concomitant]
  5. PROZAC [Concomitant]
  6. AVANDIA [Concomitant]
  7. GLYBURIDE [Concomitant]

REACTIONS (11)
  - ASTHENIA [None]
  - DEPRESSION [None]
  - DIARRHOEA [None]
  - FEELING ABNORMAL [None]
  - GLYCOSYLATED HAEMOGLOBIN INCREASED [None]
  - HUNGER [None]
  - HYPERHIDROSIS [None]
  - MACULAR DEGENERATION [None]
  - NAUSEA [None]
  - TREMOR [None]
  - WEIGHT DECREASED [None]
